FAERS Safety Report 8006918-5 (Version None)
Quarter: 2011Q4

REPORT INFORMATION
  Report Type: 
  Country: None (occurrence: None)
  Receive Date: 20111227
  Receipt Date: 20111220
  Transmission Date: 20120403
  Serious: Yes (Other)
  Sender: FDA-Public Use
  Company Number: US-JNJFOC-20111101653

PATIENT
  Sex: Female

DRUGS (1)
  1. INVEGA SUSTENNA [Suspect]
     Indication: BIPOLAR DISORDER
     Route: 030
     Dates: start: 20111001

REACTIONS (6)
  - INCORRECT DOSE ADMINISTERED [None]
  - INSOMNIA [None]
  - ADVERSE DRUG REACTION [None]
  - PRODUCT QUALITY ISSUE [None]
  - CONFUSIONAL STATE [None]
  - SUICIDAL IDEATION [None]
